FAERS Safety Report 4623258-2 (Version None)
Quarter: 2005Q1

REPORT INFORMATION
  Report Type: 
  Country: None (occurrence: None)
  Receive Date: 20050329
  Receipt Date: 20050321
  Transmission Date: 20050727
  Serious: Yes (Life-Threatening, Other)
  Sender: FDA-Public Use
  Company Number: 2004111734

PATIENT
  Age: 59 Year
  Sex: Female
  Weight: 68.4932 kg

DRUGS (25)
  1. CELECOXIB (CELECOXIB) [Suspect]
     Indication: COLORECTAL CANCER METASTATIC
     Dosage: 800 MG (400 MG, 2 IN 1 D), ORAL
     Route: 048
     Dates: start: 20040913, end: 20041207
  2. IRINOTECAN HCL [Suspect]
     Indication: COLORECTAL CANCER METASTATIC
     Dosage: 313 MG (180 MG/M2, 14 D), INTRAVENOUS
     Route: 042
     Dates: start: 20040913
  3. FLUOROURACIL [Suspect]
     Indication: COLORECTAL CANCER METASTATIC
     Dosage: 700 MG (400 MG/M2, 1 IN 14 D), INTRAVENOUS
     Route: 042
     Dates: start: 20040913
  4. LEUCOVORIN CALCIUM [Suspect]
     Indication: COLORECTAL CANCER METASTATIC
     Dosage: (689 MG, 1 IN 14 D), INTRAVENOUS
     Route: 042
     Dates: start: 20040913
  5. BEVACIZUMAB (BEVACIZUMAB) [Suspect]
     Indication: COLORECTAL CANCER METASTATIC
     Dosage: (363 MG, 1 IN 14 D), INTRAVENOUS
     Route: 042
     Dates: start: 20040913, end: 20041129
  6. LISINOPRIL [Concomitant]
  7. CODEINE PHOSPHATE AND ACETAMINOPHEN [Concomitant]
  8. ATENOLOL [Concomitant]
  9. METFORMIN HCL [Concomitant]
  10. GRANISETRON (GRANISETRON) [Concomitant]
  11. DEXAMETHASONE [Concomitant]
  12. ATROPINE [Concomitant]
  13. IMODIUM ADVANCED (LOPERAMIDE HYDROCHLORIDE, SIMETICONE) [Concomitant]
  14. PANTOPRAZOLE (PANTOPRAZOLE) [Concomitant]
  15. GELCLAIR (ENOXOLONE, HYALURONATE SODIUM, POLYVIDONE) [Concomitant]
  16. NYSTATIN [Concomitant]
  17. CIPROFLOXACIN [Concomitant]
  18. PROCHLORPERAZINE EDISYLATE [Concomitant]
  19. IBUPROFEN [Concomitant]
  20. IRON (IRON) [Concomitant]
  21. VERAPAMIL [Concomitant]
  22. FOSINOPRIL SODIUM [Concomitant]
  23. FEXOFENADINE HYDROCHLORIDE [Concomitant]
  24. CLONIDINE [Concomitant]
  25. AMITRIPTYLINE HYDROCHLORIDE [Concomitant]

REACTIONS (7)
  - ACTIVATED PARTIAL THROMBOPLASTIN TIME PROLONGED [None]
  - DEEP VEIN THROMBOSIS [None]
  - DIARRHOEA [None]
  - GASTROOESOPHAGEAL REFLUX DISEASE [None]
  - MUSCLE SPASMS [None]
  - PULMONARY EMBOLISM [None]
  - URINARY TRACT INFECTION [None]
